FAERS Safety Report 7607358-0 (Version None)
Quarter: 2011Q3

REPORT INFORMATION
  Report Type: 
  Country: None (occurrence: None)
  Receive Date: 20110713
  Receipt Date: 20110630
  Transmission Date: 20111222
  Serious: Yes (Other)
  Sender: FDA-Public Use
  Company Number: DE-MYLANLABS-2011S1013506

PATIENT
  Age: 52 Year
  Sex: Male

DRUGS (1)
  1. ALENDRONATE SODIUM [Suspect]
     Indication: OSTEOPOROSIS
     Route: 048
     Dates: start: 20070401, end: 20080401

REACTIONS (2)
  - OSTEONECROSIS OF JAW [None]
  - ALVEOLITIS [None]
